FAERS Safety Report 26090080 (Version 1)
Quarter: 2025Q4

REPORT INFORMATION
  Report Type: Spontaneous
  Country: CA (occurrence: CA)
  Receive Date: 20251126
  Receipt Date: 20251126
  Transmission Date: 20260119
  Serious: Yes (Life-Threatening, Hospitalization, Other)
  Sender: TEVA
  Company Number: CA-TEVA-VS-3176413

PATIENT
  Age: 61 Year
  Sex: Female

DRUGS (2)
  1. MYCOPHENOLIC ACID [Suspect]
     Active Substance: MYCOPHENOLIC ACID
     Indication: Immunosuppressant drug therapy
     Dosage: DOSAGE FORM: NOT SPECIFIED
     Route: 065
  2. TACROLIMUS [Suspect]
     Active Substance: TACROLIMUS
     Indication: Immunosuppressant drug therapy
     Route: 065

REACTIONS (4)
  - Brain abscess [Unknown]
  - Cerebral nocardiosis [Unknown]
  - Cerebral toxoplasmosis [Unknown]
  - Encephalomalacia [Unknown]
